FAERS Safety Report 5613004-8 (Version None)
Quarter: 2008Q1

REPORT INFORMATION
  Report Type: 
  Country: None (occurrence: None)
  Receive Date: 20080204
  Receipt Date: 20080124
  Transmission Date: 20080703
  Serious: Yes (Hospitalization)
  Sender: FDA-Public Use
  Company Number: GB-GILEAD-2008-0015134

PATIENT
  Age: 63 Year
  Sex: Male
  Weight: 34.75 kg

DRUGS (6)
  1. VIREAD [Suspect]
     Indication: HIV INFECTION
     Route: 048
     Dates: start: 20030101, end: 20070807
  2. ATAZANAVIR SULFATE [Concomitant]
     Route: 048
  3. RITONAVIR [Concomitant]
     Route: 048
  4. CITALOPRAM [Concomitant]
     Route: 048
  5. PARACETAMOL [Concomitant]
     Route: 048
  6. THIAMINE [Concomitant]
     Route: 048

REACTIONS (3)
  - LACTIC ACIDOSIS [None]
  - RENAL FAILURE [None]
  - WEIGHT DECREASED [None]
